FAERS Safety Report 5166775-1 (Version None)
Quarter: 2006Q4

REPORT INFORMATION
  Report Type: 
  Country: None (occurrence: None)
  Receive Date: 20061204
  Receipt Date: 20061204
  Transmission Date: 20070319
  Serious: Yes (Death)
  Sender: FDA-Public Use
  Company Number: None

PATIENT
  Age: 54 Year
  Sex: Male
  Weight: 69 kg

DRUGS (2)
  1. TRASYLOL [Suspect]
     Indication: SURGERY
     Dosage: 200ML X2 IV BOLUS
     Route: 040
     Dates: start: 20060824, end: 20060824
  2. TRASYLOL [Suspect]
     Indication: SURGERY
     Dosage: 50ML/HR X1 IV DRIP
     Route: 041
     Dates: start: 20060824, end: 20060824

REACTIONS (2)
  - RENAL FAILURE [None]
  - VASCULAR GRAFT OCCLUSION [None]
